FAERS Safety Report 26217771 (Version 1)
Quarter: 2025Q4

REPORT INFORMATION
  Report Type: Report from Study
  Country: US (occurrence: US)
  Receive Date: 20251231
  Receipt Date: 20251231
  Transmission Date: 20260118
  Serious: Yes (Hospitalization)
  Sender: APELLIS PHARMACEUTICALS
  Company Number: US-APELLIS-2025-APL-0002390

PATIENT

DRUGS (1)
  1. PEGCETACOPLAN [Suspect]
     Active Substance: PEGCETACOPLAN
     Indication: C3 glomerulopathy
     Dosage: 1080MG, TWICE WEEKLY
     Route: 058
     Dates: start: 20251205

REACTIONS (7)
  - Arthralgia [Recovering/Resolving]
  - Vomiting [Recovering/Resolving]
  - Cold sweat [Recovered/Resolved]
  - Chest discomfort [Recovering/Resolving]
  - White blood cell count increased [Recovered/Resolved]
  - Nausea [Recovering/Resolving]
  - Dizziness [Recovering/Resolving]

NARRATIVE: CASE EVENT DATE: 20251205
